FAERS Safety Report 5307538-3 (Version None)
Quarter: 2007Q1

REPORT INFORMATION
  Report Type: 
  Country: None (occurrence: None)
  Receive Date: 20070201
  Receipt Date: 20061211
  Transmission Date: 20070707
  Serious: No
  Sender: FDA-Public Use
  Company Number: 2006PV026717

PATIENT
  Age: 57 Year
  Sex: Female

DRUGS (3)
  1. BYETTA [Suspect]
     Indication: DIABETES MELLITUS NON-INSULIN-DEPENDENT
     Dosage: 5 MCG;BID;SC
     Route: 058
     Dates: start: 20061206
  2. HUMULIN 70/30 [Concomitant]
  3. COUMADIN [Concomitant]

REACTIONS (5)
  - BLOOD URINE PRESENT [None]
  - CHILLS [None]
  - DYSURIA [None]
  - MICTURITION URGENCY [None]
  - RENAL IMPAIRMENT [None]
